FAERS Safety Report 18545114 (Version 8)
Quarter: 2021Q4

REPORT INFORMATION
  Report Type: Spontaneous
  Country: US (occurrence: US)
  Receive Date: 20201125
  Receipt Date: 20211028
  Transmission Date: 20220303
  Serious: Yes (Disabling, Other)
  Sender: FDA-Public Use
  Company Number: US-PFIZER INC-2019308618

PATIENT
  Age: 74 Year
  Sex: Female
  Weight: 59.42 kg

DRUGS (2)
  1. PREMARIN [Suspect]
     Active Substance: ESTROGENS, CONJUGATED
     Indication: Prophylaxis
     Dosage: UNK
     Route: 067
  2. PREMARIN [Suspect]
     Active Substance: ESTROGENS, CONJUGATED
     Dosage: 20 MG (3/4 A WEEK)
     Route: 067
     Dates: start: 202012

REACTIONS (6)
  - Brain neoplasm [Unknown]
  - Disease recurrence [Unknown]
  - Off label use [Unknown]
  - Intentional product misuse [Unknown]
  - Memory impairment [Unknown]
  - Ear pain [Unknown]
